FAERS Safety Report 22295019 (Version 1)
Quarter: 2023Q2

REPORT INFORMATION
  Report Type: Spontaneous
  Country: US (occurrence: US)
  Receive Date: 20230508
  Receipt Date: 20230508
  Transmission Date: 20230721
  Serious: Yes (Other)
  Sender: FDA-Public Use
  Company Number: US-SA-2023SA138047

PATIENT
  Age: 31 Year
  Sex: Male

DRUGS (4)
  1. ALEMTUZUMAB [Suspect]
     Active Substance: ALEMTUZUMAB
     Indication: Immunosuppressant drug therapy
     Dosage: UNK
  2. PREDNISONE [Suspect]
     Active Substance: PREDNISONE
     Indication: Immunosuppressant drug therapy
     Dosage: UNK
  3. TACROLIMUS [Suspect]
     Active Substance: TACROLIMUS
     Indication: Immunosuppressant drug therapy
     Dosage: UNK
  4. MYCOPHENOLATE MOFETIL [Suspect]
     Active Substance: MYCOPHENOLATE MOFETIL
     Indication: Immunosuppressant drug therapy
     Dosage: UNK

REACTIONS (11)
  - Acute kidney injury [Recovering/Resolving]
  - Acute allograft nephropathy [Recovering/Resolving]
  - Proteinuria [Recovering/Resolving]
  - Haemophagocytic lymphohistiocytosis [Recovering/Resolving]
  - Hypertransaminasaemia [Recovering/Resolving]
  - Hypertriglyceridaemia [Recovering/Resolving]
  - Cytomegalovirus infection [Unknown]
  - Pyrexia [Unknown]
  - Pancytopenia [Unknown]
  - Diarrhoea [Unknown]
  - Off label use [Unknown]
